FAERS Safety Report 8575466-6 (Version None)
Quarter: 2012Q3

REPORT INFORMATION
  Report Type: 
  Country: None (occurrence: None)
  Receive Date: 20120807
  Receipt Date: 20120801
  Transmission Date: 20120928
  Serious: Yes (Death, Hospitalization, Other)
  Sender: FDA-Public Use
  Company Number: PHHY2012CA033971

PATIENT
  Sex: Female

DRUGS (1)
  1. SANDOSTATIN LAR [Suspect]
     Indication: MALIGNANT PERITONEAL NEOPLASM
     Dosage: 20 MG ONCE EVERY 3 WEEKS
     Route: 030
     Dates: start: 20111212, end: 20120416

REACTIONS (1)
  - INTESTINAL OBSTRUCTION [None]
